FAERS Safety Report 7024277-1 (Version None)
Quarter: 2010Q4

REPORT INFORMATION
  Report Type: 
  Country: None (occurrence: None)
  Receive Date: 20101001
  Receipt Date: 20100927
  Transmission Date: 20110411
  Serious: Yes (Other)
  Sender: FDA-Public Use
  Company Number: US-ROCHE-729524

PATIENT

DRUGS (3)
  1. ISOTRETINOIN [Suspect]
     Indication: NEOPLASM RECURRENCE
     Dosage: FOR 14 DAYS EVERY 28 DAYS
     Route: 065
  2. VORINOSTAT [Suspect]
     Indication: NEOPLASM RECURRENCE
     Dosage: FOR 14 DAYS EVERY 28 DAYS
     Route: 048
  3. VORINOSTAT [Suspect]
     Route: 048

REACTIONS (4)
  - HYPERTRIGLYCERIDAEMIA [None]
  - HYPOPHOSPHATAEMIA [None]
  - NEUTROPENIA [None]
  - THROMBOCYTOPENIA [None]
